FAERS Safety Report 24204049 (Version 1)
Quarter: 2024Q3

REPORT INFORMATION
  Report Type: Report from Study
  Country: MY (occurrence: MY)
  Receive Date: 20240813
  Receipt Date: 20240813
  Transmission Date: 20241017
  Serious: Yes (Death, Other)
  Sender: RANBAXY
  Company Number: MY-SUN PHARMACEUTICAL INDUSTRIES LTD-2024R1-461092

PATIENT
  Age: 69 Year
  Sex: Male

DRUGS (10)
  1. CIPROFLOXACIN [Suspect]
     Active Substance: CIPROFLOXACIN
     Indication: Pancreatitis necrotising
     Dosage: UNK
     Route: 065
  2. CIPROFLOXACIN [Suspect]
     Active Substance: CIPROFLOXACIN
     Indication: Sepsis
     Dosage: UNK
     Route: 065
  3. TIGECYCLINE [Suspect]
     Active Substance: TIGECYCLINE
     Indication: Pancreatitis necrotising
     Dosage: UNK
     Route: 042
  4. TIGECYCLINE [Suspect]
     Active Substance: TIGECYCLINE
     Indication: Sepsis
  5. AZTREONAM [Suspect]
     Active Substance: AZTREONAM
     Indication: Pancreatitis necrotising
     Dosage: UNK
     Route: 065
  6. AZTREONAM [Suspect]
     Active Substance: AZTREONAM
     Indication: Sepsis
  7. AVIBACTAM SODIUM\CEFTAZIDIME [Suspect]
     Active Substance: AVIBACTAM SODIUM\CEFTAZIDIME
     Indication: Pancreatitis necrotising
     Dosage: UNK
     Route: 065
  8. AVIBACTAM SODIUM\CEFTAZIDIME [Suspect]
     Active Substance: AVIBACTAM SODIUM\CEFTAZIDIME
     Indication: Sepsis
  9. POLYMYXIN B [Suspect]
     Active Substance: POLYMYXIN B
     Indication: Pancreatitis necrotising
     Dosage: UNK
     Route: 065
  10. POLYMYXIN B [Suspect]
     Active Substance: POLYMYXIN B
     Indication: Sepsis

REACTIONS (1)
  - Death [Fatal]
